FAERS Safety Report 11440491 (Version 2)
Quarter: 2015Q4

REPORT INFORMATION
  Report Type: Report from Study
  Country: JP (occurrence: JP)
  Receive Date: 20150901
  Receipt Date: 20151106
  Transmission Date: 20160304
  Serious: Yes (Hospitalization)
  Sender: FDA-Public Use
  Company Number: PHHO2014JP013318

PATIENT
  Age: 65 Year
  Sex: Female
  Weight: 48 kg

DRUGS (23)
  1. ZILDASAC [Concomitant]
     Indication: HERPES ZOSTER
     Dosage: UNK
     Route: 065
     Dates: start: 20140806, end: 20140813
  2. JUVELA [Concomitant]
     Active Substance: .ALPHA.-TOCOPHEROL\RETINOL
     Indication: HYPERLIPIDAEMIA
     Dosage: UNK
     Route: 065
     Dates: start: 20080415, end: 20111118
  3. RHEUMATREX [Concomitant]
     Active Substance: METHOTREXATE SODIUM
     Dosage: 6 MG, QW
     Route: 048
     Dates: start: 20060522, end: 20060525
  4. RHEUMATREX [Concomitant]
     Active Substance: METHOTREXATE SODIUM
     Dosage: 12 MG, QW
     Route: 048
     Dates: start: 20110422
  5. VANARL N [Concomitant]
     Indication: HYPERLIPIDAEMIA
     Dosage: 300 MG, UNK
     Route: 048
     Dates: start: 20111129
  6. AIN457 [Suspect]
     Active Substance: SECUKINUMAB
     Dosage: 150 MG, QD
     Route: 058
     Dates: start: 20131209
  7. RHEUMATREX [Concomitant]
     Active Substance: METHOTREXATE SODIUM
     Indication: RHEUMATOID ARTHRITIS
     Dosage: 4 MG, QW
     Route: 048
     Dates: start: 20060417, end: 20060521
  8. FUCIDIN LEO [Concomitant]
     Active Substance: FUSIDATE SODIUM
     Indication: HYPERKERATOSIS
     Dosage: UNK
     Route: 065
     Dates: start: 20140730
  9. LOPERAMIDE [Concomitant]
     Active Substance: LOPERAMIDE
     Indication: PRODUCT USED FOR UNKNOWN INDICATION
     Dosage: UNK
     Route: 065
     Dates: start: 20140304, end: 20140306
  10. RHEUMATREX [Concomitant]
     Active Substance: METHOTREXATE SODIUM
     Dosage: 8 MG, QW
     Route: 048
     Dates: start: 20060626, end: 20110324
  11. LULICON [Concomitant]
     Indication: TINEA PEDIS
     Dosage: UNK
     Route: 065
     Dates: start: 20130819
  12. HIRUDOID [Concomitant]
     Active Substance: GLYCOSAMINOGLYCANS
     Indication: HYPERKERATOSIS
     Dosage: UNK
     Route: 065
     Dates: start: 20130617
  13. AIN457 [Suspect]
     Active Substance: SECUKINUMAB
     Indication: RHEUMATOID ARTHRITIS
     Dosage: 150 MG, UNK
     Route: 058
     Dates: start: 20131209
  14. ORYZATYM [Concomitant]
     Indication: PRODUCT USED FOR UNKNOWN INDICATION
     Dosage: UNK
     Route: 065
     Dates: start: 20140304, end: 20140306
  15. RUEFRIEN [Concomitant]
     Active Substance: GLUTAMINE\SODIUM GUALENATE
     Indication: PRODUCT USED FOR UNKNOWN INDICATION
     Dosage: UNK
     Route: 065
     Dates: start: 20140304, end: 20140306
  16. MECOBALAMIN [Concomitant]
     Active Substance: METHYLCOBALAMIN
     Indication: NEUROPATHY PERIPHERAL
     Dosage: 1000 UG, UNK
     Route: 048
     Dates: start: 20110422
  17. CYTOTEC [Concomitant]
     Active Substance: MISOPROSTOL
     Indication: PROPHYLAXIS
     Dosage: 400 UG, UNK
     Route: 048
     Dates: start: 20030224
  18. FOLIAMIN [Concomitant]
     Active Substance: FOLIC ACID
     Indication: PROPHYLAXIS
     Dosage: UNK
     Route: 048
     Dates: start: 20070604
  19. NAUZELIN [Concomitant]
     Active Substance: DOMPERIDONE
     Indication: PRODUCT USED FOR UNKNOWN INDICATION
     Dosage: UNK
     Route: 065
     Dates: start: 20140304, end: 20140306
  20. RHEUMATREX [Concomitant]
     Active Substance: METHOTREXATE SODIUM
     Dosage: 10 MG, QW
     Route: 048
     Dates: start: 20110325, end: 20110421
  21. LOXOPROFEN SODIUM [Concomitant]
     Active Substance: LOXOPROFEN SODIUM
     Indication: RHEUMATOID ARTHRITIS
     Dosage: 120 MG, UNK
     Route: 048
     Dates: start: 20130402
  22. NABOAL [Concomitant]
     Active Substance: DICLOFENAC
     Indication: RHEUMATOID ARTHRITIS
     Dosage: UNK
     Route: 065
     Dates: start: 20131003
  23. NEGMIN SUGAR [Concomitant]
     Indication: SKIN ULCER
     Dosage: UNK
     Route: 065
     Dates: start: 20131013

REACTIONS (1)
  - Cellulitis [Recovered/Resolved]

NARRATIVE: CASE EVENT DATE: 20140929
